FAERS Safety Report 10869787 (Version 3)
Quarter: 2015Q2

REPORT INFORMATION
  Report Type: Spontaneous
  Country: US (occurrence: US)
  Receive Date: 20150226
  Receipt Date: 20150409
  Transmission Date: 20150821
  Serious: Yes (Hospitalization, Other)
  Sender: FDA-Public Use
  Company Number: US-AMGEN-USASP2015016201

PATIENT
  Sex: Female

DRUGS (4)
  1. NEULASTA [Suspect]
     Active Substance: PEGFILGRASTIM
     Indication: PRODUCT USED FOR UNKNOWN INDICATION
     Dosage: UNK
     Route: 065
  2. TAXOTERE [Concomitant]
     Active Substance: DOCETAXEL
     Indication: INVASIVE DUCTAL BREAST CARCINOMA
     Dosage: UNK
     Dates: start: 20140812
  3. AROMASIN [Concomitant]
     Active Substance: EXEMESTANE
     Indication: HORMONE THERAPY
     Dosage: UNK
     Dates: start: 20150103
  4. CYTOXAN [Concomitant]
     Active Substance: CYCLOPHOSPHAMIDE
     Indication: INVASIVE DUCTAL BREAST CARCINOMA
     Dosage: UNK
     Dates: start: 20140812

REACTIONS (16)
  - Neutropenia [Unknown]
  - Gingival disorder [Unknown]
  - Constipation [Unknown]
  - Dysgeusia [Unknown]
  - Dyspepsia [Unknown]
  - Flatulence [Unknown]
  - White blood cell count decreased [Not Recovered/Not Resolved]
  - Body temperature increased [Unknown]
  - Fatigue [Unknown]
  - Migraine [Unknown]
  - Infection [Unknown]
  - Back pain [Unknown]
  - Pruritus [Unknown]
  - Bone pain [Not Recovered/Not Resolved]
  - Mobility decreased [Unknown]
  - Tongue discolouration [Unknown]
